FAERS Safety Report 7214540-3 (Version None)
Quarter: 2011Q1

REPORT INFORMATION
  Report Type: 
  Country: None (occurrence: None)
  Receive Date: 20110107
  Receipt Date: 20101230
  Transmission Date: 20110831
  Serious: Yes (Hospitalization, Other)
  Sender: FDA-Public Use
  Company Number: US-JNJFOC-20091102007

PATIENT
  Sex: Female
  Weight: 32.93 kg

DRUGS (21)
  1. INFLIXIMAB [Suspect]
     Route: 042
     Dates: start: 20060315, end: 20080103
  2. AUGMENTIN '125' [Concomitant]
  3. FLUCONAZOLE [Concomitant]
  4. ACETAMINOPHEN W/ CODEINE [Concomitant]
  5. NYSTATIN [Concomitant]
  6. ANTIBIOTICS [Concomitant]
     Indication: INFLAMMATORY BOWEL DISEASE
  7. MESALAZINE [Concomitant]
     Indication: INFLAMMATORY BOWEL DISEASE
  8. PERCOCET [Concomitant]
  9. MULTI-VITAMINS [Concomitant]
  10. KEFLEX [Concomitant]
  11. KETOCONAZOLE [Concomitant]
  12. INFLIXIMAB [Suspect]
     Indication: INFLAMMATORY BOWEL DISEASE
     Route: 042
     Dates: start: 20060315, end: 20080103
  13. ATIVAN [Concomitant]
  14. OMEGA 3 FATTY ACIDS [Concomitant]
  15. INFLIXIMAB [Suspect]
     Route: 042
     Dates: start: 20060315, end: 20080103
  16. ACETAMINOPHEN [Concomitant]
  17. IRON [Concomitant]
  18. ZINC SULFATE [Concomitant]
  19. ASPIRIN [Concomitant]
  20. KENALOG [Concomitant]
  21. HUMIRA [Concomitant]

REACTIONS (5)
  - SURGERY [None]
  - ANAPHYLACTIC REACTION [None]
  - SEPTIC SHOCK [None]
  - DEVICE RELATED INFECTION [None]
  - STAPHYLOCOCCAL SEPSIS [None]
